FAERS Safety Report 25236658 (Version 7)
Quarter: 2025Q3

REPORT INFORMATION
  Report Type: Report from Study
  Country: EU (occurrence: EU)
  Receive Date: 20250424
  Receipt Date: 20250812
  Transmission Date: 20251021
  Serious: Yes (Death, Other)
  Sender: PFIZER
  Company Number: EU-TAKEDA-2023TUS118416

PATIENT
  Age: 55 Year
  Sex: Male
  Weight: 80 kg

DRUGS (9)
  1. ADCETRIS [Suspect]
     Active Substance: BRENTUXIMAB VEDOTIN
     Indication: Cutaneous T-cell lymphoma
     Route: 065
  2. ADCETRIS [Suspect]
     Active Substance: BRENTUXIMAB VEDOTIN
     Route: 065
  3. ADCETRIS [Suspect]
     Active Substance: BRENTUXIMAB VEDOTIN
     Dosage: 150 MILLIGRAM, Q3WEEKS
     Route: 042
     Dates: start: 20220301
  4. ADCETRIS [Suspect]
     Active Substance: BRENTUXIMAB VEDOTIN
     Dosage: 95 MILLIGRAM, Q3WEEKS
     Route: 042
  5. METFORMIN HYDROCHLORIDE [Concomitant]
     Active Substance: METFORMIN HYDROCHLORIDE
     Indication: Fungal infection
     Dosage: 20 MILLIGRAM, 1/WEEK
     Route: 048
  6. METFORMIN HYDROCHLORIDE [Concomitant]
     Active Substance: METFORMIN HYDROCHLORIDE
     Indication: Prophylaxis
  7. FOLIC ACID [Concomitant]
     Active Substance: FOLIC ACID
     Indication: Cutaneous T-cell lymphoma
     Dosage: 15 MILLIGRAM, TID
     Route: 048
  8. METHYLPREDNISOLONE [Concomitant]
     Active Substance: METHYLPREDNISOLONE
     Indication: Cutaneous T-cell lymphoma
     Dosage: 4 MILLIGRAM, 1/WEEK
     Route: 048
  9. METHOTREXATE SODIUM [Concomitant]
     Active Substance: METHOTREXATE SODIUM
     Indication: Cutaneous T-cell lymphoma
     Dosage: 20 MILLIGRAM, 1/WEEK
     Route: 048

REACTIONS (8)
  - Death [Fatal]
  - Polyneuropathy [Not Recovered/Not Resolved]
  - Hepatotoxicity [Not Recovered/Not Resolved]
  - Ventricular hypokinesia [Unknown]
  - Electrocardiogram abnormal [Unknown]
  - Aortic dilatation [Unknown]
  - Atrial enlargement [Unknown]
  - Cough [Unknown]

NARRATIVE: CASE EVENT DATE: 20220727
